FAERS Safety Report 8900866 (Version 2)
Quarter: 2013Q1

REPORT INFORMATION
  Report Type: Spontaneous
  Country: US (occurrence: US)
  Receive Date: 20121109
  Receipt Date: 20130308
  Transmission Date: 20140127
  Serious: Yes (Other)
  Sender: FDA-Public Use
  Company Number: US-TEVA-368845USA

PATIENT
  Sex: Female

DRUGS (12)
  1. COPAXONE [Suspect]
     Indication: MULTIPLE SCLEROSIS
     Route: 058
     Dates: start: 20080813
  2. ZOCOR [Concomitant]
  3. VITAMIN D3 [Concomitant]
  4. BACLOFEN [Concomitant]
     Indication: MUSCLE DISORDER
     Route: 048
  5. DIOVAN [Concomitant]
  6. NUVIGIL [Concomitant]
  7. FISH OIL [Concomitant]
  8. VITAMIN B12 [Concomitant]
  9. LYRICA [Concomitant]
  10. MECLIZINE [Concomitant]
  11. ASPIRIN [Concomitant]
  12. METHYLPREDNISOLONE [Concomitant]
     Dosage: INTERMITTENT
     Route: 042

REACTIONS (2)
  - Fungal infection [Not Recovered/Not Resolved]
  - Deafness [Not Recovered/Not Resolved]
